FAERS Safety Report 6426373-6 (Version None)
Quarter: 2009Q4

REPORT INFORMATION
  Report Type: 
  Country: None (occurrence: None)
  Receive Date: 20091103
  Receipt Date: 20091103
  Transmission Date: 20100525
  Serious: No
  Sender: FDA-Public Use
  Company Number: None

PATIENT
  Age: 85 Year

DRUGS (1)
  1. WARFARIN SODIUM [Suspect]
     Indication: PULMONARY EMBOLISM
     Dates: start: 20080915, end: 20081006

REACTIONS (6)
  - BLADDER INJURY [None]
  - HAEMATURIA [None]
  - HAEMORRHAGE [None]
  - INJURY [None]
  - MEDICAL DEVICE COMPLICATION [None]
  - PROSTATIC DISORDER [None]
